FAERS Safety Report 4374770-5 (Version None)
Quarter: 2004Q2

REPORT INFORMATION
  Report Type: 
  Country: None (occurrence: None)
  Receive Date: 20040609
  Receipt Date: 20040527
  Transmission Date: 20050107
  Serious: Yes (Other)
  Sender: FDA-Public Use
  Company Number: BR-BRISTOL-MYERS SQUIBB COMPANY-12599486

PATIENT
  Age: 63 Year
  Sex: Female
  Weight: 63 kg

DRUGS (2)
  1. TAXOL [Suspect]
     Indication: BREAST CANCER
     Dosage: THERAPY DATES: 17-JUL-2003 TO 11-NOV-2003
     Route: 042
     Dates: start: 20030717, end: 20030717
  2. DOXORUBICIN HCL [Concomitant]

REACTIONS (4)
  - ANOREXIA [None]
  - DRY MOUTH [None]
  - FATIGUE [None]
  - NAUSEA [None]
